FAERS Safety Report 7557716-8 (Version None)
Quarter: 2011Q2

REPORT INFORMATION
  Report Type: 
  Country: None (occurrence: None)
  Receive Date: 20110620
  Receipt Date: 20110616
  Transmission Date: 20111010
  Serious: Yes (Life-Threatening, Hospitalization, Other)
  Sender: FDA-Public Use
  Company Number: US-JNJFOC-20101104462

PATIENT
  Sex: Female

DRUGS (15)
  1. CITALOPRAM HYDROBROMIDE [Suspect]
     Indication: DEPRESSION
     Route: 065
  2. RISPERIDONE [Suspect]
     Route: 048
     Dates: start: 20090606
  3. TRIMETHOPRIM + SULFAMETHOXAZOLE [Suspect]
     Indication: ILL-DEFINED DISORDER
     Dosage: 2 DOUBLE STRENGTH TABLETS/DAY
     Route: 065
  4. RISPERIDONE [Suspect]
     Indication: DISTURBANCE IN SOCIAL BEHAVIOUR
     Route: 048
  5. RISPERIDONE [Suspect]
     Route: 048
     Dates: start: 20090606
  6. RISPERIDONE [Suspect]
     Route: 048
     Dates: start: 20090605
  7. ASPIRIN [Suspect]
     Indication: PROPHYLAXIS
     Route: 065
  8. DONEPEZIL HCL [Suspect]
     Indication: DEMENTIA ALZHEIMER'S TYPE
     Route: 065
  9. RISPERIDONE [Suspect]
     Route: 048
     Dates: start: 20090605
  10. RISPERIDONE [Suspect]
     Indication: AGGRESSION
     Route: 048
     Dates: start: 20090607
  11. RISPERIDONE [Suspect]
     Route: 048
  12. LEVOTHYROXINE SODIUM [Suspect]
     Indication: HYPOTHYROIDISM
     Route: 065
  13. ATENOLOL [Suspect]
     Indication: HYPERTENSION
     Route: 065
  14. RISPERIDONE [Suspect]
     Route: 048
     Dates: start: 20090607
  15. MEMANTINE [Suspect]
     Indication: DEMENTIA ALZHEIMER'S TYPE
     Route: 065

REACTIONS (1)
  - SEROTONIN SYNDROME [None]
